FAERS Safety Report 6680334-0 (Version None)
Quarter: 2010Q2

REPORT INFORMATION
  Report Type: 
  Country: None (occurrence: None)
  Receive Date: 20100412
  Receipt Date: 20100405
  Transmission Date: 20101027
  Serious: Yes (Hospitalization)
  Sender: FDA-Public Use
  Company Number: 553535

PATIENT
  Age: 37 Year
  Sex: Female

DRUGS (3)
  1. EPINEPHRINE [Suspect]
     Indication: ANAPHYLAXIS TREATMENT
     Dosage: .5 MG, UNKNOWN, INTRAVENOUS BOLUS, .5 MG ( UNKNOWN ), INTRAVENOUS BOLUS, 1 MG ( UNKNOWN ), INTRAVENO
     Route: 040
  2. (OXYGEN) OXYGEN SUPPLEMENTATION (OXYGEN SUPPLEMENTATION) [Concomitant]
  3. SODIUM CHLORIDE [Concomitant]

REACTIONS (7)
  - ACCIDENTAL OVERDOSE [None]
  - ACUTE CORONARY SYNDROME [None]
  - DRUG ADMINISTRATION ERROR [None]
  - ELECTROCARDIOGRAM ST SEGMENT DEPRESSION [None]
  - KOUNIS SYNDROME [None]
  - MYOCARDIAL ISCHAEMIA [None]
  - WRONG TECHNIQUE IN DRUG USAGE PROCESS [None]
